FAERS Safety Report 5939852-2 (Version None)
Quarter: 2008Q4

REPORT INFORMATION
  Report Type: 
  Country: None (occurrence: None)
  Receive Date: 20081030
  Receipt Date: 20081030
  Transmission Date: 20090506
  Serious: Yes (Death)
  Sender: FDA-Public Use
  Company Number: None

PATIENT
  Age: 65 Year
  Sex: Female
  Weight: 51 kg

DRUGS (2)
  1. OXALIPLATIN [Suspect]
     Dosage: 85 MG/M2 IV Q 14 DAYS
     Route: 042
     Dates: start: 20080903, end: 20080917
  2. SORAFENIB-BAYER PHARMACEUTICALS [Suspect]
     Dosage: 200 MG PO BID
     Route: 048
     Dates: start: 20080903, end: 20080917

REACTIONS (5)
  - DEHYDRATION [None]
  - DISEASE PROGRESSION [None]
  - HEPATIC FAILURE [None]
  - JAUNDICE CHOLESTATIC [None]
  - MUSCULAR WEAKNESS [None]
